FAERS Safety Report 9991570 (Version 2)
Quarter: 2014Q2

REPORT INFORMATION
  Report Type: Spontaneous
  Country: US (occurrence: US)
  Receive Date: 20140310
  Receipt Date: 20140407
  Transmission Date: 20141212
  Serious: Yes (Other)
  Sender: FDA-Public Use
  Company Number: US-AMGEN-USASP2014016350

PATIENT
  Age: 53 Year
  Sex: Female
  Weight: 90.7 kg

DRUGS (7)
  1. ENBREL [Suspect]
     Indication: RHEUMATOID ARTHRITIS
     Dosage: 50 MG, UNK
     Route: 065
     Dates: start: 20131101, end: 201402
  2. FISH OIL [Concomitant]
     Dosage: UNK
  3. NABUMETONE [Concomitant]
     Dosage: 750 MG, UNK
  4. LORTAB                             /00607101/ [Concomitant]
     Dosage: 5 TABLETS
  5. HUMIRA [Concomitant]
     Dosage: UNK
     Dates: start: 201303, end: 201310
  6. ORENCIA [Concomitant]
     Dosage: UNK
     Dates: start: 201310, end: 2013
  7. XELJANZ [Concomitant]
     Dosage: UNK
     Dates: start: 2014

REACTIONS (12)
  - Staphylococcal infection [Unknown]
  - Mouth ulceration [Recovered/Resolved]
  - Facial asymmetry [Recovered/Resolved]
  - Eye swelling [Recovered/Resolved]
  - Eye contusion [Recovered/Resolved]
  - Pharyngeal ulceration [Recovered/Resolved]
  - Mobility decreased [Not Recovered/Not Resolved]
  - Upper respiratory tract infection [Unknown]
  - Oral infection [Recovered/Resolved]
  - Eye infection [Recovered/Resolved]
  - Localised infection [Recovered/Resolved]
  - Infection [Recovered/Resolved]
